FAERS Safety Report 5496863-1 (Version None)
Quarter: 2007Q4

REPORT INFORMATION
  Report Type: 
  Country: None (occurrence: None)
  Receive Date: 20071025
  Receipt Date: 20070917
  Transmission Date: 20080405
  Serious: No
  Sender: FDA-Public Use
  Company Number: A0677025A

PATIENT
  Age: 87 Year
  Sex: Male

DRUGS (10)
  1. ADVAIR DISKUS 100/50 [Suspect]
     Indication: CHRONIC OBSTRUCTIVE PULMONARY DISEASE
     Dosage: 1PCT TWICE PER DAY
     Route: 055
     Dates: start: 20070824
  2. PROAIR HFA [Concomitant]
  3. FUROSEMIDE [Concomitant]
  4. GABAPENTIN [Concomitant]
  5. NITROQUICK [Concomitant]
  6. METOPROLOL [Concomitant]
  7. NYSTATIN [Concomitant]
  8. CELEXA [Concomitant]
  9. POTASSIUM CHLORIDE [Concomitant]
  10. AMIODARONE [Concomitant]

REACTIONS (2)
  - DRUG INEFFECTIVE [None]
  - PHARMACEUTICAL PRODUCT COMPLAINT [None]
